FAERS Safety Report 4498411-1 (Version None)
Quarter: 2004Q4

REPORT INFORMATION
  Report Type: 
  Country: None (occurrence: None)
  Receive Date: 20041105
  Receipt Date: 20041027
  Transmission Date: 20050328
  Serious: No
  Sender: FDA-Public Use
  Company Number: A-CH2004-05039

PATIENT
  Age: 65 Year
  Sex: Male

DRUGS (13)
  1. TRACLEER [Suspect]
     Indication: PULMONARY HYPERTENSION
     Dosage: SEE IMAGE
     Route: 048
     Dates: start: 20031020, end: 20031123
  2. TRACLEER [Suspect]
     Indication: PULMONARY HYPERTENSION
     Dosage: SEE IMAGE
     Route: 048
     Dates: start: 20031124, end: 20040113
  3. TRACLEER [Suspect]
     Indication: PULMONARY HYPERTENSION
     Dosage: SEE IMAGE
     Route: 048
     Dates: start: 20040702
  4. LASIX [Concomitant]
  5. ALDACTONE [Concomitant]
  6. THEOSTAT (PHEOPHYLLINE) [Concomitant]
  7. LEVOTHYROXINE SODIUM [Concomitant]
  8. ALLOPURINOL [Concomitant]
  9. PREVISCAN (FLUINDIONE) [Concomitant]
  10. FORADIL [Concomitant]
  11. OXYGEN (OXYGEN) [Concomitant]
  12. LANSOPRAZOLE [Concomitant]
  13. HYDROCORTISONE [Concomitant]

REACTIONS (8)
  - CONDITION AGGRAVATED [None]
  - COUGH [None]
  - DRUG INEFFECTIVE [None]
  - HOT FLUSH [None]
  - NAUSEA [None]
  - PAIN [None]
  - PRURITUS [None]
  - PULMONARY HYPERTENSION [None]
